FAERS Safety Report 8379312-5 (Version None)
Quarter: 2012Q2

REPORT INFORMATION
  Report Type: 
  Country: None (occurrence: None)
  Receive Date: 20120523
  Receipt Date: 20120516
  Transmission Date: 20120825
  Serious: Yes (Other)
  Sender: FDA-Public Use
  Company Number: PHHY2012JP036805

PATIENT
  Age: 20 Year
  Sex: Male

DRUGS (4)
  1. CLOZARIL [Suspect]
     Dosage: 100 MG, DAILY
     Route: 048
     Dates: start: 20120424, end: 20120427
  2. CLOZARIL [Suspect]
     Dosage: 125 MG, DAILY
     Route: 048
     Dates: start: 20120423, end: 20120424
  3. VOLTAREN [Suspect]
     Dosage: 25 MG, 4 TIMES PER DAY
     Dates: start: 20120424, end: 20120427
  4. CLOZARIL [Suspect]
     Indication: SCHIZOPHRENIA
     Dosage: 25 MG, DAILY
     Route: 048
     Dates: start: 20120410, end: 20120423

REACTIONS (15)
  - C-REACTIVE PROTEIN INCREASED [None]
  - RENAL DISORDER [None]
  - EATING DISORDER [None]
  - LEFT VENTRICULAR FAILURE [None]
  - HYPOTENSION [None]
  - DEHYDRATION [None]
  - CARDIOMYOPATHY [None]
  - ILEUS PARALYTIC [None]
  - PULMONARY CONGESTION [None]
  - PYREXIA [None]
  - MYOCARDITIS [None]
  - DELUSION [None]
  - EJECTION FRACTION ABNORMAL [None]
  - SHOCK [None]
  - HYPERPHOSPHATASAEMIA [None]
